FAERS Safety Report 19977694 (Version 1)
Quarter: 2021Q4

REPORT INFORMATION
  Report Type: Report from Study
  Country: US (occurrence: US)
  Receive Date: 20211020
  Receipt Date: 20211020
  Transmission Date: 20220304
  Serious: Yes (Death)
  Sender: FDA-Public Use
  Company Number: PFIZER INC - 202101289471

PATIENT

DRUGS (10)
  1. PEGASPARGASE [Suspect]
     Active Substance: PEGASPARGASE
     Indication: Acute lymphocytic leukaemia
     Dosage: 2348 IU, ONE DOSE, ON DAY 4
     Route: 042
     Dates: start: 20210906, end: 20210906
  2. DOXORUBICIN HYDROCHLORIDE [Suspect]
     Active Substance: DOXORUBICIN HYDROCHLORIDE
     Indication: Acute lymphocytic leukaemia
     Dosage: 25 MG/M2, 1X/WEEK
     Route: 042
     Dates: start: 20210917, end: 20210917
  3. DEXAMETHASONE SODIUM SUCCINATE [Suspect]
     Active Substance: DEXAMETHASONE SODIUM SUCCINATE
     Indication: Acute lymphocytic leukaemia
     Dosage: 5 MG/M2, QD, ON DAYS 1-7 AND 15-21
     Route: 048
     Dates: start: 20210903, end: 20210922
  4. TN UNSPECIFIED [Concomitant]
     Indication: Acute lymphocytic leukaemia
     Dosage: 1.5 MG/M2, ONE DOSE
     Route: 042
     Dates: start: 20210917, end: 20210917
  5. TN UNSPECIFIED [Concomitant]
     Indication: Acute lymphocytic leukaemia
     Dosage: 15 MG, QD, ON DAY 1
     Route: 037
     Dates: start: 20210903, end: 20210903
  6. TN UNSPECIFIED [Concomitant]
     Indication: Acute lymphocytic leukaemia
     Dosage: 60 MG/M2, QD
     Route: 048
     Dates: start: 20210418, end: 20210418
  7. TN UNSPECIFIED [Concomitant]
     Indication: Acute lymphocytic leukaemia
     Dosage: 75 MG/M2, ONE DOSE
     Route: 042
     Dates: start: 20210415, end: 20210415
  8. TN UNSPECIFIED [Concomitant]
     Indication: Acute lymphocytic leukaemia
     Dosage: 1000 MG/M2, ONE DOSE
     Route: 042
     Dates: start: 20210405, end: 20210405
  9. TN UNSPECIFIED [Concomitant]
     Indication: Acute lymphocytic leukaemia
     Dosage: 0.5 MG/M2, 1X/WEEK
     Route: 042
     Dates: start: 20210118
  10. TN UNSPECIFIED [Concomitant]
     Indication: Acute lymphocytic leukaemia
     Dosage: 25 MG/M2, EVERY 1 WEEK
     Route: 042
     Dates: start: 20201106, end: 20201120

REACTIONS (1)
  - Multiple organ dysfunction syndrome [Fatal]

NARRATIVE: CASE EVENT DATE: 20210923
